FAERS Safety Report 9730661 (Version 4)
Quarter: 2013Q4

REPORT INFORMATION
  Report Type: Spontaneous
  Country: AR (occurrence: AR)
  Receive Date: 20131205
  Receipt Date: 20131227
  Transmission Date: 20140711
  Serious: Yes (Other)
  Sender: FDA-Public Use
  Company Number: AR-AMGEN-ARGSP2013085539

PATIENT
  Age: 45 Year
  Sex: Female

DRUGS (2)
  1. ENBREL [Suspect]
     Indication: RHEUMATOID ARTHRITIS
     Dosage: 50 MG, WEEKLY
     Route: 065
     Dates: start: 20110811
  2. MIOPROPAN [Concomitant]
     Dosage: UNK

REACTIONS (3)
  - Thrombosis [Recovering/Resolving]
  - Haemorrhoids thrombosed [Recovering/Resolving]
  - Feeling abnormal [Unknown]
